FAERS Safety Report 20790625 (Version 4)
Quarter: 2022Q3

REPORT INFORMATION
  Report Type: Report from Study
  Country: CO (occurrence: CO)
  Receive Date: 20220505
  Receipt Date: 20220908
  Transmission Date: 20221026
  Serious: Yes (Hospitalization)
  Sender: FDA-Public Use
  Company Number: CO-SA-SAC20220503000175

PATIENT
  Age: 38 Year
  Sex: Female

DRUGS (3)
  1. ALEMTUZUMAB [Suspect]
     Active Substance: ALEMTUZUMAB
     Indication: Multiple sclerosis
     Dosage: 1 DF, QD
     Route: 042
     Dates: start: 20220428
  2. TAPENTADOL [Concomitant]
     Active Substance: TAPENTADOL
     Indication: Pain
     Dosage: 150 G, QD
     Route: 048
  3. LACOSAMIDE [Concomitant]
     Active Substance: LACOSAMIDE
     Indication: Seizure
     Dosage: 1 DF, QD
     Route: 048

REACTIONS (14)
  - Oxygen saturation decreased [Recovered/Resolved]
  - Feeling hot [Recovered/Resolved]
  - Skin burning sensation [Recovered/Resolved]
  - Myalgia [Recovering/Resolving]
  - Asthenia [Recovering/Resolving]
  - Tachycardia [Recovered/Resolved]
  - Headache [Recovering/Resolving]
  - Pruritus [Recovered/Resolved]
  - Swelling [Recovered/Resolved]
  - Wheezing [Recovered/Resolved]
  - Chest pain [Recovered/Resolved]
  - Abdominal pain [Recovering/Resolving]
  - Cough [Recovering/Resolving]
  - Neuralgia [Not Recovered/Not Resolved]

NARRATIVE: CASE EVENT DATE: 20220428
